FAERS Safety Report 7912479-9 (Version None)
Quarter: 2011Q4

REPORT INFORMATION
  Report Type: 
  Country: None (occurrence: None)
  Receive Date: 20111114
  Receipt Date: 20111108
  Transmission Date: 20120403
  Serious: No
  Sender: FDA-Public Use
  Company Number: US-PFIZER INC-2011270996

PATIENT
  Sex: Female
  Weight: 56.2 kg

DRUGS (2)
  1. RAMIPRIL [Concomitant]
     Indication: HYPERTENSION
     Dosage: 5 MG, DAILY
     Route: 048
  2. EXEMESTANE [Suspect]
     Indication: BREAST CANCER
     Dosage: UNK

REACTIONS (1)
  - MALAISE [None]
